FAERS Safety Report 7496582-6 (Version None)
Quarter: 2011Q2

REPORT INFORMATION
  Report Type: 
  Country: None (occurrence: None)
  Receive Date: 20110523
  Receipt Date: 20110512
  Transmission Date: 20111010
  Serious: Yes (Hospitalization)
  Sender: FDA-Public Use
  Company Number: GB-ACTELION-A-CH2011-48142

PATIENT
  Sex: Female

DRUGS (2)
  1. WARFARIN SODIUM [Suspect]
     Dosage: UNK
     Dates: end: 20110405
  2. TRACLEER [Suspect]
     Indication: PULMONARY ARTERIAL HYPERTENSION
     Dosage: 100 MG, UNK
     Route: 048

REACTIONS (3)
  - GASTROINTESTINAL TUBE INSERTION [None]
  - LIVER FUNCTION TEST ABNORMAL [None]
  - CEREBROVASCULAR ACCIDENT [None]
